FAERS Safety Report 7974551-7 (Version None)
Quarter: 2011Q4

REPORT INFORMATION
  Report Type: 
  Country: None (occurrence: None)
  Receive Date: 20111213
  Receipt Date: 20111202
  Transmission Date: 20120403
  Serious: Yes (Hospitalization)
  Sender: FDA-Public Use
  Company Number: AT-JNJFOC-20111111488

PATIENT
  Age: 53 Year
  Sex: Female
  Weight: 62 kg

DRUGS (5)
  1. REMICADE [Suspect]
     Indication: COLITIS ULCERATIVE
     Route: 042
     Dates: start: 20101105
  2. LEVOTHYROXINE SODIUM [Concomitant]
     Indication: HYPOTHYROIDISM
  3. AZATHIOPRINE [Suspect]
     Indication: PRODUCT USED FOR UNKNOWN INDICATION
     Dates: end: 20101125
  4. ATENOLOL [Concomitant]
     Indication: HYPOTENSION
     Route: 048
  5. URSO FALK [Concomitant]
     Indication: CHOLESTASIS
     Dates: start: 20101126, end: 20101217

REACTIONS (3)
  - CHOLESTASIS [None]
  - HAEMANGIOMA OF LIVER [None]
  - HYPERBILIRUBINAEMIA [None]
